FAERS Safety Report 4450576-3 (Version None)
Quarter: 2004Q3

REPORT INFORMATION
  Report Type: 
  Country: None (occurrence: None)
  Receive Date: 20040914
  Receipt Date: 20040830
  Transmission Date: 20050211
  Serious: Yes (Hospitalization)
  Sender: FDA-Public Use
  Company Number: 04P-093-0271914-00

PATIENT
  Age: 13 Year
  Sex: Female

DRUGS (3)
  1. DEPAKENE [Suspect]
     Indication: EPILEPSY
  2. CARBAMAZEPINE [Suspect]
     Indication: EPILEPSY
  3. PHENYTOIN SODIUM [Suspect]
     Indication: EPILEPSY

REACTIONS (6)
  - BLOOD 1,25-DIHYDROXYCHOLECALCIFEROL INCREASED [None]
  - BLOOD ALKALINE PHOSPHATASE INCREASED [None]
  - BLOOD PARATHYROID HORMONE INCREASED [None]
  - BLOOD PHOSPHORUS INCREASED [None]
  - STATUS EPILEPTICUS [None]
  - VITAMIN D DEFICIENCY [None]
